FAERS Safety Report 5445788-6 (Version None)
Quarter: 2007Q3

REPORT INFORMATION
  Report Type: 
  Country: None (occurrence: None)
  Receive Date: 20070904
  Receipt Date: 20070823
  Transmission Date: 20080115
  Serious: Yes (Death, Hospitalization)
  Sender: FDA-Public Use
  Company Number: THQ2007A00808

PATIENT
  Age: 60 Year
  Sex: Male

DRUGS (5)
  1. PIOGLITAZONE HCL [Suspect]
     Dosage: 4 MG
  2. BYETTA [Suspect]
     Indication: DIABETES MELLITUS
     Dosage: 10 MG (5 MCG,2 IN 1 D), SUBCUTANEOUS
     Route: 058
     Dates: start: 20070730
  3. EXENATIDE 5 MCG PEN, DISPOSABLE DEVICE [Concomitant]
  4. METFORMIN HCL [Concomitant]
  5. INSULIN GLARGINE [Concomitant]

REACTIONS (2)
  - CARDIAC FAILURE CONGESTIVE [None]
  - TREATMENT NONCOMPLIANCE [None]
